FAERS Safety Report 8804752 (Version 2)
Quarter: 2012Q4

REPORT INFORMATION
  Report Type: Report from Study
  Country: DE (occurrence: DE)
  Receive Date: 20120924
  Receipt Date: 20121016
  Transmission Date: 20130627
  Serious: Yes (Hospitalization, Disabling)
  Sender: FDA-Public Use
  Company Number: DE-SANOFI-AVENTIS-2012SA068655

PATIENT
  Age: 58 Year
  Sex: Male
  Weight: 75 kg

DRUGS (5)
  1. MULTAQ [Suspect]
     Indication: ATRIAL FIBRILLATION
     Dosage: Unit cont:800
     Route: 048
     Dates: start: 20120611
  2. BISOPROLOL [Concomitant]
     Indication: ATRIAL FIBRILLATION
     Dosage: Unit cont:1.25
     Route: 048
     Dates: start: 20120416
  3. RAMIPRIL [Concomitant]
     Indication: DRUG USE FOR UNKNOWN INDICATION
     Dosage: Unit cont:5
     Route: 048
     Dates: start: 20120514
  4. MARCUMAR [Concomitant]
     Indication: ANTICOAGULANT THERAPY
     Route: 048
     Dates: start: 20120416, end: 20120718
  5. MARCUMAR [Concomitant]
     Indication: ATRIAL FIBRILLATION
     Route: 048
     Dates: start: 20120416, end: 20120718

REACTIONS (3)
  - Cerebral infarction [Recovered/Resolved with Sequelae]
  - Dysarthria [Recovered/Resolved with Sequelae]
  - Hemiparesis [Recovered/Resolved with Sequelae]
